FAERS Safety Report 5513065-0 (Version None)
Quarter: 2007Q4

REPORT INFORMATION
  Report Type: 
  Country: None (occurrence: None)
  Receive Date: 20071112
  Receipt Date: 20070927
  Transmission Date: 20080405
  Serious: No
  Sender: FDA-Public Use
  Company Number: US-ABBOTT-07P-163-0420137-00

PATIENT
  Sex: Female

DRUGS (5)
  1. TRICOR [Suspect]
     Indication: BLOOD CHOLESTEROL INCREASED
     Dates: end: 20071001
  2. TRICOR [Suspect]
     Indication: BLOOD TRIGLYCERIDES INCREASED
  3. EZETIMIBE [Concomitant]
     Indication: BLOOD CHOLESTEROL INCREASED
  4. EZETIMIBE [Concomitant]
     Indication: BLOOD TRIGLYCERIDES INCREASED
  5. ACETYLSALICYLIC ACID SRT [Concomitant]
     Indication: PLATELET COUNT INCREASED
     Route: 048

REACTIONS (6)
  - COUGH [None]
  - DRY MOUTH [None]
  - FATIGUE [None]
  - LETHARGY [None]
  - MUSCULAR WEAKNESS [None]
  - RESPIRATORY TRACT CONGESTION [None]
